FAERS Safety Report 8477714-X (Version None)
Quarter: 2012Q2

REPORT INFORMATION
  Report Type: 
  Country: None (occurrence: None)
  Receive Date: 20120629
  Receipt Date: 20120621
  Transmission Date: 20120825
  Serious: Yes (Hospitalization)
  Sender: FDA-Public Use
  Company Number: US-BAYER-2012-019540

PATIENT
  Age: 28 Year
  Sex: Female
  Weight: 77.098 kg

DRUGS (5)
  1. ZOFRAN [Concomitant]
  2. VICODIN [Concomitant]
  3. YAZ [Suspect]
     Indication: PRODUCT USED FOR UNKNOWN INDICATION
     Dosage: UNK
     Dates: start: 20090701, end: 20091201
  4. YASMIN [Suspect]
     Dosage: UNK
     Dates: start: 20090701, end: 20091201
  5. PROTONIX [Concomitant]

REACTIONS (6)
  - PAIN [None]
  - INJURY [None]
  - ABDOMINAL PAIN [None]
  - CHOLELITHIASIS [None]
  - CHOLECYSTITIS CHRONIC [None]
  - BILIARY COLIC [None]
